FAERS Safety Report 15662806 (Version 3)
Quarter: 2020Q1

REPORT INFORMATION
  Report Type: Spontaneous
  Country: US (occurrence: US)
  Receive Date: 20181127
  Receipt Date: 20200103
  Transmission Date: 20200409
  Serious: Yes (Other)
  Sender: FDA-Public Use
  Company Number: US-SA-2018SA175025

PATIENT
  Age: 60 Year
  Sex: Female
  Weight: 56.2 kg

DRUGS (6)
  1. DOCETAXEL. [Suspect]
     Active Substance: DOCETAXEL
     Indication: BREAST CANCER FEMALE
     Dosage: 130MG -150MG IN EVERY 3-4WEEKS
     Route: 042
     Dates: start: 20131016, end: 20131016
  2. DOCETAXEL. [Suspect]
     Active Substance: DOCETAXEL
     Dosage: 130MG -150MG IN EVERY 3-4WEEKS
     Route: 042
     Dates: start: 20140108, end: 20140108
  3. CYTOXAN [Concomitant]
     Active Substance: CYCLOPHOSPHAMIDE
     Indication: BREAST CANCER FEMALE
  4. ACYCLOVIR [ACICLOVIR SODIUM] [Concomitant]
     Active Substance: ACYCLOVIR
  5. NEOSAR [Concomitant]
     Active Substance: CYCLOPHOSPHAMIDE
     Indication: BREAST CANCER FEMALE
  6. NADOLOL. [Concomitant]
     Active Substance: NADOLOL

REACTIONS (2)
  - Alopecia [Recovering/Resolving]
  - Psychological trauma [Unknown]

NARRATIVE: CASE EVENT DATE: 20140701
